FAERS Safety Report 21297112 (Version 1)
Quarter: 2022Q3

REPORT INFORMATION
  Report Type: Spontaneous
  Country: US (occurrence: None)
  Receive Date: 20220902
  Receipt Date: 20220902
  Transmission Date: 20221027
  Serious: Yes (Hospitalization)
  Sender: FDA-Public Use
  Company Number: None

PATIENT
  Age: 85 Year
  Sex: Male
  Weight: 102 kg

DRUGS (4)
  1. OMEPRAZOLE [Suspect]
     Active Substance: OMEPRAZOLE
     Indication: Gastrooesophageal reflux disease
     Dosage: 40 MG EVERY DAY PO?
     Route: 048
     Dates: start: 20200902, end: 20220823
  2. OMEPRAZOLE [Suspect]
     Active Substance: OMEPRAZOLE
     Indication: Cardiopulmonary failure
     Dosage: 1.5 MG EVERY DAY PO?
  3. OMEPRAZOLE [Suspect]
     Active Substance: OMEPRAZOLE
     Indication: Oedema
  4. BUMETANIDE [Suspect]
     Active Substance: BUMETANIDE
     Indication: Cardiopulmonary failure
     Dosage: FREQUENCY : DAILY;?
     Route: 048
     Dates: start: 20220821, end: 20220822

REACTIONS (1)
  - Hypomagnesaemia [None]

NARRATIVE: CASE EVENT DATE: 20220822
